FAERS Safety Report 24860833 (Version 1)
Quarter: 2025Q1

REPORT INFORMATION
  Report Type: Spontaneous
  Country: US (occurrence: US)
  Receive Date: 20250120
  Receipt Date: 20250120
  Transmission Date: 20250408
  Serious: Yes (Other)
  Sender: GRIFOLS
  Company Number: US-IGSA-BIG0032417

PATIENT
  Age: 67 Year
  Sex: Female

DRUGS (2)
  1. GAMUNEX-C [Suspect]
     Active Substance: HUMAN IMMUNOGLOBULIN G
     Indication: Myasthenia gravis
     Route: 042
     Dates: start: 20250106, end: 20250106
  2. GAMUNEX-C [Suspect]
     Active Substance: HUMAN IMMUNOGLOBULIN G
     Dosage: 60 GRAM, Q.3WK.
     Route: 042
     Dates: start: 20180315

REACTIONS (4)
  - Urticaria [Recovered/Resolved]
  - Swelling [Unknown]
  - Tongue erythema [Unknown]
  - Dysphagia [Unknown]

NARRATIVE: CASE EVENT DATE: 20250106
